FAERS Safety Report 13554112 (Version 1)
Quarter: 2017Q2

REPORT INFORMATION
  Report Type: Spontaneous
  Country: HU (occurrence: HU)
  Receive Date: 20170517
  Receipt Date: 20170517
  Transmission Date: 20170830
  Serious: Yes (Hospitalization)
  Sender: FDA-Public Use
  Company Number: HU-TEVA-767623ISR

PATIENT
  Age: 61 Year
  Sex: Male

DRUGS (3)
  1. TAMSUDIL [Suspect]
     Active Substance: TAMSULOSIN HYDROCHLORIDE
     Indication: PROSTATOMEGALY
     Route: 048
     Dates: start: 20170323
  2. ZINNAT [Concomitant]
     Active Substance: CEFUROXIME AXETIL
     Indication: CYSTITIS
  3. XANAX [Interacting]
     Active Substance: ALPRAZOLAM
     Indication: PANIC DISORDER
     Dosage: 0.5MG ONCE DAILY, 1MG IN CASE OF PANIC ATTACK
     Route: 048
     Dates: start: 2009

REACTIONS (6)
  - Panic reaction [Recovered/Resolved with Sequelae]
  - Psychotic disorder [Recovered/Resolved]
  - Drug interaction [Recovered/Resolved]
  - Insomnia [Recovered/Resolved]
  - Palpitations [Recovered/Resolved]
  - Depression [Recovered/Resolved]

NARRATIVE: CASE EVENT DATE: 20170324
